FAERS Safety Report 17336082 (Version 1)
Quarter: 2020Q1

REPORT INFORMATION
  Report Type: Spontaneous
  Country: SE (occurrence: SE)
  Receive Date: 20200128
  Receipt Date: 20200128
  Transmission Date: 20200409
  Serious: Yes (Life-Threatening, Hospitalization, Disabling)
  Sender: FDA-Public Use
  Company Number: SE-PFIZER INC-2020036266

PATIENT
  Age: 42 Year
  Sex: Female
  Weight: 65 kg

DRUGS (6)
  1. FLUOXETINE [Concomitant]
     Active Substance: FLUOXETINE HYDROCHLORIDE
     Dates: start: 199810
  2. FELODIPINE. [Concomitant]
     Active Substance: FELODIPINE
     Dates: start: 201705
  3. SYNARELA [Suspect]
     Active Substance: NAFARELIN ACETATE
     Indication: PREMENSTRUAL DYSPHORIC DISORDER
  4. TIBOLONE [Concomitant]
     Active Substance: TIBOLONE
     Dates: start: 20191017, end: 20191119
  5. LOSARTAN. [Concomitant]
     Active Substance: LOSARTAN
     Dates: start: 201502
  6. SYNARELA [Suspect]
     Active Substance: NAFARELIN ACETATE
     Indication: ARTIFICIAL MENOPAUSE
     Route: 045
     Dates: start: 20191003, end: 20191119

REACTIONS (25)
  - Psychotic disorder [Not Recovered/Not Resolved]
  - Fall [Not Recovered/Not Resolved]
  - Back pain [Not Recovered/Not Resolved]
  - Hyperacusis [Not Recovered/Not Resolved]
  - Hypertension [Not Recovered/Not Resolved]
  - Loss of control of legs [Not Recovered/Not Resolved]
  - Product use in unapproved indication [Unknown]
  - Dyskinesia [Not Recovered/Not Resolved]
  - Tinnitus [Not Recovered/Not Resolved]
  - Screaming [Not Recovered/Not Resolved]
  - Speech disorder [Not Recovered/Not Resolved]
  - Off label use [Unknown]
  - Hyperhidrosis [Not Recovered/Not Resolved]
  - Tremor [Not Recovered/Not Resolved]
  - Dyspnoea [Not Recovered/Not Resolved]
  - Gait inability [Not Recovered/Not Resolved]
  - Disorientation [Not Recovered/Not Resolved]
  - Near death experience [Not Recovered/Not Resolved]
  - Pain in extremity [Not Recovered/Not Resolved]
  - Anxiety [Not Recovered/Not Resolved]
  - Dysphemia [Not Recovered/Not Resolved]
  - Panic attack [Not Recovered/Not Resolved]
  - Muscle twitching [Not Recovered/Not Resolved]
  - Photophobia [Not Recovered/Not Resolved]
  - Heart rate increased [Not Recovered/Not Resolved]

NARRATIVE: CASE EVENT DATE: 20191003
